FAERS Safety Report 5872348-5 (Version None)
Quarter: 2008Q3

REPORT INFORMATION
  Report Type: 
  Country: None (occurrence: None)
  Receive Date: 20080905
  Receipt Date: 20080829
  Transmission Date: 20090109
  Serious: Yes (Hospitalization)
  Sender: FDA-Public Use
  Company Number: JP-AVENTIS-200812619JP

PATIENT
  Age: 76 Year
  Sex: Female
  Weight: 47 kg

DRUGS (8)
  1. LANTUS [Suspect]
     Indication: TYPE 2 DIABETES MELLITUS
     Dosage: DOSE: 18 TO 30 UNITS
     Route: 058
     Dates: start: 20080717, end: 20080813
  2. INNOLET 30R [Concomitant]
     Indication: TYPE 2 DIABETES MELLITUS
     Dates: end: 20080716
  3. WARFARIN SODIUM [Concomitant]
     Route: 048
     Dates: start: 20080610
  4. WARFARIN SODIUM [Concomitant]
     Route: 048
  5. LANIRAPID [Concomitant]
     Route: 048
     Dates: start: 20080610
  6. NORVASC [Concomitant]
     Route: 048
     Dates: start: 20080610
  7. ALDACTONE [Concomitant]
     Dosage: DOSE: 12.5MG
     Route: 048
     Dates: start: 20080610
  8. PURSENNID                          /00571901/ [Concomitant]
     Route: 048
     Dates: start: 20080610

REACTIONS (5)
  - HEPATIC STEATOSIS [None]
  - HEPATOMEGALY [None]
  - LIVER DISORDER [None]
  - MALAISE [None]
  - UPPER RESPIRATORY TRACT INFLAMMATION [None]
